FAERS Safety Report 8382391-2 (Version None)
Quarter: 2012Q2

REPORT INFORMATION
  Report Type: 
  Country: None (occurrence: None)
  Receive Date: 20120524
  Receipt Date: 20120511
  Transmission Date: 20120825
  Serious: Yes (Other)
  Sender: FDA-Public Use
  Company Number: GR-JNJFOC-20120109689

PATIENT
  Sex: Female

DRUGS (2)
  1. STELARA [Suspect]
     Indication: PSORIASIS
     Route: 058
     Dates: start: 20120101
  2. STELARA [Suspect]
     Route: 058
     Dates: start: 20120507, end: 20120507

REACTIONS (2)
  - RASH [None]
  - PSORIASIS [None]
